FAERS Safety Report 8759985 (Version 1)
Quarter: 2012Q4

REPORT INFORMATION
  Report Type: 
  Country: CN (occurrence: CN)
  Receive Date: 20120829
  Receipt Date: 20120829
  Transmission Date: 20130627
  Serious: Yes (Other)
  Sender: FDA-Public Use
  Company Number: CN-ROCHE-1106036

PATIENT
  Sex: Female
  Weight: 56 kg

DRUGS (7)
  1. ROCEPHIN [Suspect]
     Indication: INFECTION PROPHYLAXIS
     Route: 041
     Dates: start: 20100810, end: 20100824
  2. LOW MOLECULAR HEPARIN [Suspect]
     Indication: THROMBOSIS PROPHYLAXIS
     Route: 058
     Dates: start: 20100811, end: 20100824
  3. TAGAMET [Concomitant]
     Indication: PROPHYLAXIS AGAINST GASTROINTESTINAL ULCER
     Route: 041
     Dates: start: 20100810, end: 20100824
  4. LINCOMYCIN [Concomitant]
     Indication: INFECTION PROPHYLAXIS
     Route: 041
     Dates: start: 20100812, end: 20100824
  5. LACTATED RINGER^S [Concomitant]
     Indication: FLUID REPLACEMENT
     Route: 041
     Dates: start: 20100810
  6. POTASSIUM CHLORIDE [Concomitant]
     Indication: FLUID REPLACEMENT
     Route: 041
     Dates: start: 20100810
  7. VITAMIN C [Concomitant]
     Indication: FLUID REPLACEMENT
     Route: 041
     Dates: start: 20100810

REACTIONS (1)
  - Cerebral haemorrhage [Recovered/Resolved with Sequelae]
